FAERS Safety Report 17377168 (Version 5)
Quarter: 2021Q1

REPORT INFORMATION
  Report Type: Report from Study
  Country: CO (occurrence: CO)
  Receive Date: 20200206
  Receipt Date: 20210102
  Transmission Date: 20210419
  Serious: Yes (Life-Threatening, Hospitalization, Other)
  Sender: FDA-Public Use
  Company Number: NVSC2020CO015658

PATIENT
  Age: 56 Year
  Sex: Male
  Weight: 84 kg

DRUGS (8)
  1. COSENTYX [Suspect]
     Active Substance: SECUKINUMAB
     Dosage: 150 MG, QMO
     Route: 058
  2. LOPRESOR [Suspect]
     Active Substance: METOPROLOL
     Indication: HYPERTENSION
     Dosage: 50 MG, QD
     Route: 048
  3. LOSARTAN AND HYDROCHLOROTHIAZIDE [Concomitant]
     Active Substance: HYDROCHLOROTHIAZIDE\LOSARTAN POTASSIUM
     Indication: HYPERTENSION
     Dosage: 100 MG, QD
     Route: 065
  4. AMLODIPINE BESILATE [Suspect]
     Active Substance: AMLODIPINE BESYLATE
     Indication: HYPERTENSION
     Dosage: 10 MG, QD
     Route: 048
  5. ATORVASTATIN [Suspect]
     Active Substance: ATORVASTATIN
     Indication: HYPERTENSION
     Dosage: 40 MG, QD
     Route: 048
  6. LOSARTAN. [Suspect]
     Active Substance: LOSARTAN
     Indication: PRODUCT USED FOR UNKNOWN INDICATION
     Dosage: 100 MG, QD
     Route: 048
  7. COSENTYX [Suspect]
     Active Substance: SECUKINUMAB
     Indication: PSORIATIC ARTHROPATHY
     Dosage: 300 MG, QMO
     Route: 058
     Dates: start: 20190924
  8. A S A [Concomitant]
     Indication: HYPERTENSION
     Dosage: 100 MG, QD
     Route: 065

REACTIONS (18)
  - Stress [Not Recovered/Not Resolved]
  - Anxiety [Not Recovered/Not Resolved]
  - Skin exfoliation [Unknown]
  - Intervertebral disc degeneration [Unknown]
  - Pain in extremity [Not Recovered/Not Resolved]
  - Influenza [Recovered/Resolved]
  - Suicide attempt [Unknown]
  - Limb discomfort [Not Recovered/Not Resolved]
  - Arthralgia [Unknown]
  - Diarrhoea [Unknown]
  - Neck pain [Not Recovered/Not Resolved]
  - Inflammation [Not Recovered/Not Resolved]
  - Depression [Unknown]
  - Pain [Not Recovered/Not Resolved]
  - Rhinitis allergic [Unknown]
  - Insomnia [Not Recovered/Not Resolved]
  - Hypoaesthesia [Not Recovered/Not Resolved]
  - Skin plaque [Unknown]

NARRATIVE: CASE EVENT DATE: 2019
